FAERS Safety Report 12799122 (Version 1)
Quarter: 2016Q3

REPORT INFORMATION
  Report Type: Report from Study
  Country: US (occurrence: US)
  Receive Date: 20160930
  Receipt Date: 20160930
  Transmission Date: 20161109
  Serious: Yes (Other)
  Sender: FDA-Public Use
  Company Number: US-AMGEN-USASL2016133647

PATIENT

DRUGS (1)
  1. KYPROLIS [Suspect]
     Active Substance: CARFILZOMIB
     Indication: PRODUCT USED FOR UNKNOWN INDICATION
     Dosage: UNK
     Route: 065

REACTIONS (17)
  - Back pain [Unknown]
  - Dehydration [Unknown]
  - Local swelling [Unknown]
  - Mass [Unknown]
  - Blood test abnormal [Unknown]
  - Arthropathy [Unknown]
  - Bronchitis [Unknown]
  - Asthma [Unknown]
  - Diplopia [Unknown]
  - Upper respiratory tract infection [Unknown]
  - Body mass index abnormal [Unknown]
  - Radiculopathy [Unknown]
  - Anaemia [Unknown]
  - Obesity [Unknown]
  - Essential hypertension [Unknown]
  - Polyarthritis [Unknown]
  - Headache [Unknown]

NARRATIVE: CASE EVENT DATE: 20150310
